FAERS Safety Report 7745397-X (Version None)
Quarter: 2011Q3

REPORT INFORMATION
  Report Type: 
  Country: None (occurrence: None)
  Receive Date: 20110825
  Receipt Date: 20110517
  Transmission Date: 20111222
  Serious: No
  Sender: FDA-Public Use
  Company Number: 329016

PATIENT
  Age: 60 Year
  Sex: Female

DRUGS (14)
  1. VITAMIN A /00056001/ (RETINOL) [Concomitant]
  2. VICTOZA [Suspect]
     Indication: TYPE 2 DIABETES MELLITUS
     Dosage: 1.8 MG, QD, SUBCUTANEOUS
     Route: 058
     Dates: start: 20110408, end: 20110428
  3. AMARYL [Concomitant]
  4. ASPIRIN [Concomitant]
  5. BAYTERIN /00697202/ [Concomitant]
  6. MATURE MULTIVITAMINS (ASCORBIC ACID, BIOTIN, BORON, CALCIUM, CHROMIUM, [Concomitant]
  7. SYNTHROID [Concomitant]
  8. MOBIC [Concomitant]
  9. GLUCOSAMINE + CHONDROITIN /01430901/ (CHONDROITIN SULFATE, GLUCOSAMINE [Concomitant]
  10. VITAMIN C + E (ASCORBIC ACID, TOCOPHEROL) [Concomitant]
  11. FISH OIL (FISH OIL) [Concomitant]
  12. BYETTA [Suspect]
     Indication: TYPE 2 DIABETES MELLITUS
  13. PAXIL [Concomitant]
  14. ERGOCALCIFEROL [Concomitant]

REACTIONS (5)
  - DYSGEUSIA [None]
  - VOMITING [None]
  - NAUSEA [None]
  - VERTIGO [None]
  - PAROSMIA [None]
